FAERS Safety Report 6524458-7 (Version None)
Quarter: 2009Q4

REPORT INFORMATION
  Report Type: 
  Country: None (occurrence: None)
  Receive Date: 20091231
  Receipt Date: 20091231
  Transmission Date: 20100525
  Serious: Yes (Other)
  Sender: FDA-Public Use
  Company Number: None

PATIENT
  Age: 61 Year
  Sex: Female
  Weight: 61.2356 kg

DRUGS (1)
  1. TRILIPIX [Suspect]

REACTIONS (3)
  - ABDOMINAL PAIN [None]
  - ALOPECIA [None]
  - FATIGUE [None]
